FAERS Safety Report 13150672 (Version 1)
Quarter: 2017Q1

REPORT INFORMATION
  Report Type: Spontaneous
  Country: US (occurrence: US)
  Receive Date: 20170125
  Receipt Date: 20170125
  Transmission Date: 20170428
  Serious: No
  Sender: FDA-Public Use
  Company Number: US-GLAXOSMITHKLINE-US2017008099

PATIENT
  Age: 56 Year
  Sex: Female

DRUGS (2)
  1. ALLI [Suspect]
     Active Substance: ORLISTAT
     Indication: WEIGHT LOSS DIET
     Dosage: UNK
  2. ALLI [Suspect]
     Active Substance: ORLISTAT
     Dosage: 2 PILLS, PRN, USES ALLI PERIODICALLY
     Dates: start: 201607

REACTIONS (5)
  - Inappropriate schedule of drug administration [Unknown]
  - Ill-defined disorder [Recovered/Resolved]
  - Drug ineffective [Unknown]
  - Incorrect dose administered [Unknown]
  - Treatment noncompliance [Unknown]
